FAERS Safety Report 6197859-7 (Version None)
Quarter: 2009Q2

REPORT INFORMATION
  Report Type: 
  Country: None (occurrence: None)
  Receive Date: 20090521
  Receipt Date: 20090520
  Transmission Date: 20091009
  Serious: Yes (Other)
  Sender: FDA-Public Use
  Company Number: A0785228A

PATIENT
  Age: 38 Year
  Sex: Female

DRUGS (2)
  1. ALLI [Suspect]
     Route: 048
     Dates: start: 20090513, end: 20090520
  2. WOMENS MULTIVITAMIN [Concomitant]
     Route: 048

REACTIONS (7)
  - ANAL HAEMORRHAGE [None]
  - FREQUENT BOWEL MOVEMENTS [None]
  - GASTROINTESTINAL PAIN [None]
  - HAEMATOCHEZIA [None]
  - INSOMNIA [None]
  - PROCTALGIA [None]
  - TREATMENT NONCOMPLIANCE [None]
